FAERS Safety Report 11699945 (Version 2)
Quarter: 2016Q2

REPORT INFORMATION
  Report Type: Report from Study
  Country: US (occurrence: US)
  Receive Date: 20151105
  Receipt Date: 20160501
  Transmission Date: 20160815
  Serious: No
  Sender: FDA-Public Use
  Company Number: US-AMGEN-USASL2015115824

PATIENT
  Age: 62 Year
  Sex: Female

DRUGS (1)
  1. ENBREL [Suspect]
     Active Substance: ETANERCEPT
     Indication: RHEUMATOID ARTHRITIS
     Dosage: 50 MG ONCE EVERY 10 DAYS
     Route: 065
     Dates: start: 2015

REACTIONS (9)
  - Injection site pruritus [Unknown]
  - Injection site swelling [Unknown]
  - Injection site reaction [Unknown]
  - Gastrooesophageal reflux disease [Unknown]
  - Drug administered at inappropriate site [Unknown]
  - Glossodynia [Unknown]
  - Injection site erythema [Unknown]
  - Throat irritation [Unknown]
  - Injection site pain [Unknown]

NARRATIVE: CASE EVENT DATE: 20160425
